FAERS Safety Report 11981702 (Version 1)
Quarter: 2016Q1

REPORT INFORMATION
  Report Type: Spontaneous
  Country: US (occurrence: None)
  Receive Date: 20160129
  Receipt Date: 20160129
  Transmission Date: 20160526
  Serious: No
  Sender: FDA-Public Use
  Company Number: None

PATIENT
  Age: 33 Year
  Sex: Female

DRUGS (11)
  1. PREDNISONE. [Concomitant]
     Active Substance: PREDNISONE
  2. SULFAZINE [Concomitant]
     Active Substance: SULFASALAZINE
  3. PANTOPRAZOLE [Concomitant]
     Active Substance: PANTOPRAZOLE SODIUM
  4. ENBREL [Suspect]
     Active Substance: ETANERCEPT
     Indication: RHEUMATOID ARTHRITIS
     Route: 058
     Dates: start: 20120427
  5. AZITHROMYCIN ANHYDROUS. [Concomitant]
     Active Substance: AZITHROMYCIN ANHYDROUS
  6. CARAFATE [Concomitant]
     Active Substance: SUCRALFATE
  7. ENBREL SRCLK [Concomitant]
  8. METHYLPRED [Concomitant]
     Active Substance: METHYLPREDNISOLONE
  9. ONDANSETRON [Concomitant]
     Active Substance: ONDANSETRON
  10. TRAUMEEL [Concomitant]
  11. TYLENOL PM [Concomitant]
     Active Substance: ACETAMINOPHEN\DIPHENHYDRAMINE

REACTIONS (5)
  - Condition aggravated [None]
  - Pseudolymphoma [None]
  - Joint swelling [None]
  - Drug dose omission [None]
  - Arthralgia [None]

NARRATIVE: CASE EVENT DATE: 20160122
